FAERS Safety Report 15372392 (Version 2)
Quarter: 2018Q3

REPORT INFORMATION
  Report Type: Spontaneous
  Country: US (occurrence: US)
  Receive Date: 20180911
  Receipt Date: 20180929
  Transmission Date: 20181010
  Serious: Yes (Other)
  Sender: FDA-Public Use
  Company Number: US-MALLINCKRODT-T201803796

PATIENT
  Age: 36 Year
  Sex: Male
  Weight: 113 kg

DRUGS (3)
  1. HCTZ [Concomitant]
     Active Substance: HYDROCHLOROTHIAZIDE
     Indication: BLOOD PRESSURE ABNORMAL
     Dosage: UNK
     Route: 065
  2. OMEPRAZOLE. [Concomitant]
     Active Substance: OMEPRAZOLE
     Indication: PRODUCT USED FOR UNKNOWN INDICATION
     Dosage: UNK
     Route: 065
  3. OXYCODONE [Suspect]
     Active Substance: OXYCODONE
     Indication: PAIN
     Dosage: 5 MG (2 X 5?MG TABLETS/ 10 MG 5 TIMES DAILY)
     Route: 048

REACTIONS (9)
  - Product taste abnormal [Unknown]
  - Gastric disorder [Unknown]
  - Back disorder [Unknown]
  - Nausea [Not Recovered/Not Resolved]
  - Malaise [Not Recovered/Not Resolved]
  - Gastric bypass [Unknown]
  - Product quality issue [Unknown]
  - Condition aggravated [Unknown]
  - Spinal operation [Unknown]

NARRATIVE: CASE EVENT DATE: 201409
